FAERS Safety Report 13452662 (Version 2)
Quarter: 2017Q2

REPORT INFORMATION
  Report Type: Spontaneous
  Country: US (occurrence: US)
  Receive Date: 20170418
  Receipt Date: 20170505
  Transmission Date: 20170830
  Serious: No
  Sender: FDA-Public Use
  Company Number: US-GLAXOSMITHKLINE-US2017054649

PATIENT
  Sex: Female
  Weight: 99.77 kg

DRUGS (1)
  1. NUCALA [Suspect]
     Active Substance: MEPOLIZUMAB
     Indication: ASTHMA
     Dosage: UNK UNK, CYC
     Route: 058
     Dates: start: 201612, end: 20170410

REACTIONS (5)
  - Bronchospasm [Recovered/Resolved]
  - Rash [Unknown]
  - Drug hypersensitivity [Unknown]
  - Dermatitis [Recovered/Resolved]
  - Pruritus [Recovering/Resolving]
